FAERS Safety Report 7340844-X (Version None)
Quarter: 2011Q1

REPORT INFORMATION
  Report Type: 
  Country: None (occurrence: None)
  Receive Date: 20110228
  Receipt Date: 20110211
  Transmission Date: 20110831
  Serious: Yes (Disabling, Other)
  Sender: FDA-Public Use
  Company Number: 025027

PATIENT
  Sex: Female
  Weight: 99.8 kg

DRUGS (8)
  1. OMEPRAZOLE [Concomitant]
  2. CORTICOSTEROIDS [Concomitant]
  3. IMMUNOSUPPRESSIVE AGENTS [Concomitant]
  4. DYAZIDE [Concomitant]
  5. PREDNISONE [Concomitant]
  6. ZANTAC /00550802/ [Concomitant]
  7. SYNTHROID [Concomitant]
  8. CIMZIA [Suspect]
     Indication: CROHN'S DISEASE
     Dosage: (400 MG 1X/2 WEEKS SUBCUTANEOUS)
     Route: 058
     Dates: start: 20101006, end: 20101229

REACTIONS (7)
  - MYALGIA [None]
  - MENTAL STATUS CHANGES [None]
  - ASTHENIA [None]
  - PRURITUS [None]
  - PARAESTHESIA [None]
  - SWELLING FACE [None]
  - RASH MACULO-PAPULAR [None]
